FAERS Safety Report 23223975 (Version 1)
Quarter: 2023Q4

REPORT INFORMATION
  Report Type: Other
  Country: US (occurrence: None)
  Receive Date: 20231124
  Receipt Date: 20231124
  Transmission Date: 20240110
  Serious: Yes (Hospitalization)
  Sender: FDA-Public Use
  Company Number: US-ROCHE-3461984

PATIENT
  Age: 66 Year
  Sex: Male

DRUGS (1)
  1. RITUXIMAB [Suspect]
     Active Substance: RITUXIMAB
     Indication: Mantle cell lymphoma
     Dosage: LAST DOSE IN NOV/2021
     Route: 065

REACTIONS (6)
  - Leptospirosis [Unknown]
  - Septic shock [Recovered/Resolved]
  - Pleocytosis [Recovered/Resolved]
  - Meningoencephalitis bacterial [Recovering/Resolving]
  - Lymphopenia [Unknown]
  - Hypogammaglobulinaemia [Unknown]

NARRATIVE: CASE EVENT DATE: 20220101
